FAERS Safety Report 19275155 (Version 2)
Quarter: 2021Q3

REPORT INFORMATION
  Report Type: Spontaneous
  Country: DE (occurrence: DE)
  Receive Date: 20210519
  Receipt Date: 20210714
  Transmission Date: 20211014
  Serious: Yes (Other)
  Sender: FDA-Public Use
  Company Number: DE-AMICUS THERAPEUTICS, INC.-AMI_1332

PATIENT
  Age: 69 Year
  Sex: Male

DRUGS (2)
  1. FABRAZYME [Suspect]
     Active Substance: AGALSIDASE BETA
     Indication: FABRY^S DISEASE
     Dosage: UNK
     Route: 065
     Dates: start: 202101
  2. GALAFOLD [Suspect]
     Active Substance: MIGALASTAT HYDROCHLORIDE
     Indication: FABRY^S DISEASE
     Dosage: UNK
     Route: 048
     Dates: start: 201709

REACTIONS (4)
  - Condition aggravated [Unknown]
  - Left ventricular hypertrophy [Unknown]
  - Product use issue [Recovering/Resolving]
  - Atrioventricular block complete [Unknown]

NARRATIVE: CASE EVENT DATE: 202101
